FAERS Safety Report 16881321 (Version 1)
Quarter: 2019Q4

REPORT INFORMATION
  Report Type: Report from Study
  Country: US (occurrence: US)
  Receive Date: 20191003
  Receipt Date: 20191003
  Transmission Date: 20200122
  Serious: Yes (Hospitalization)
  Sender: FDA-Public Use
  Company Number: US-PFIZER INC-2019420710

PATIENT
  Age: 78 Year
  Sex: Male
  Weight: 93 kg

DRUGS (15)
  1. DELTASONE [Concomitant]
     Active Substance: PREDNISONE
     Dosage: UNK
     Dates: start: 20190415
  2. ZOFRAN [Concomitant]
     Active Substance: ONDANSETRON HYDROCHLORIDE
     Dosage: UNK
     Dates: start: 20190710
  3. OSCAL D [CALCIUM CARBONATE;VITAMIN D NOS] [Concomitant]
     Dosage: UNK
  4. LISINOPRIL. [Concomitant]
     Active Substance: LISINOPRIL
     Dosage: UNK
  5. METAMUCIL THERAPY FOR REGULARITY [Concomitant]
     Active Substance: PSYLLIUM HUSK
  6. EPIDIOLEX [Concomitant]
     Active Substance: CANNABIDIOL
  7. DOCETAXEL HOSPIRA [Suspect]
     Active Substance: DOCETAXEL
     Dosage: 60 MG/M2, ONCE
     Dates: start: 20190912, end: 20190912
  8. OMEGA-3 FATTY ACIDS [Concomitant]
     Active Substance: OMEGA-3 FATTY ACIDS
  9. NORVASC [Concomitant]
     Active Substance: AMLODIPINE BESYLATE
     Dosage: UNK
     Dates: start: 20160310
  10. ASPIRIN (E.C.) [Concomitant]
     Active Substance: ASPIRIN
  11. HYDROCHLOROTHIAZIDE. [Concomitant]
     Active Substance: HYDROCHLOROTHIAZIDE
     Dosage: UNK
     Dates: start: 20150312
  12. CALCIUM + D3 [CALCIUM CARBONATE;COLECALCIFEROL] [Concomitant]
     Dosage: UNK
  13. DOCETAXEL HOSPIRA [Suspect]
     Active Substance: DOCETAXEL
     Indication: PROSTATE CANCER METASTATIC
     Dosage: 75 MG/M2, SINGLE
     Route: 042
     Dates: start: 20190415, end: 20190415
  14. CRESTOR [Concomitant]
     Active Substance: ROSUVASTATIN CALCIUM
  15. ASCORBIC ACID. [Concomitant]
     Active Substance: ASCORBIC ACID

REACTIONS (1)
  - Diverticulitis [Unknown]

NARRATIVE: CASE EVENT DATE: 201909
